FAERS Safety Report 13493329 (Version 1)
Quarter: 2017Q2

REPORT INFORMATION
  Report Type: Spontaneous
  Country: JP (occurrence: JP)
  Receive Date: 20170427
  Receipt Date: 20170427
  Transmission Date: 20170830
  Serious: Yes (Other)
  Sender: FDA-Public Use
  Company Number: JP-ELI_LILLY_AND_COMPANY-JP200612003757

PATIENT
  Age: 62 Year
  Sex: Female

DRUGS (2)
  1. GEMZAR [Suspect]
     Active Substance: GEMCITABINE HYDROCHLORIDE
     Indication: PANCREATIC CARCINOMA STAGE IV
     Dosage: 600 MG, OTHER
     Route: 042
  2. UFT [Concomitant]
     Active Substance: TEGAFUR\URACIL
     Indication: PANCREATIC CARCINOMA STAGE IV
     Route: 048

REACTIONS (4)
  - Malaise [Recovered/Resolved]
  - Carbohydrate antigen 19-9 increased [Recovered/Resolved]
  - Decreased appetite [Recovered/Resolved]
  - Bone marrow failure [Recovered/Resolved]
